FAERS Safety Report 4460477-2 (Version None)
Quarter: 2004Q3

REPORT INFORMATION
  Report Type: 
  Country: None (occurrence: None)
  Receive Date: 20040928
  Receipt Date: 20040826
  Transmission Date: 20050211
  Serious: No
  Sender: FDA-Public Use
  Company Number: US-GLAXOSMITHKLINE-A0524179A

PATIENT
  Age: 73 Year
  Sex: Female

DRUGS (3)
  1. SEREVENT [Suspect]
     Indication: EMPHYSEMA
     Route: 055
  2. ADVAIR DISKUS 100/50 [Suspect]
     Indication: EMPHYSEMA
     Dosage: 1PUFF TWICE PER DAY
     Route: 055
  3. COMBIVENT [Suspect]
     Dosage: 2PUFF FOUR TIMES PER DAY
     Route: 055

REACTIONS (1)
  - APHONIA [None]
